FAERS Safety Report 9360740 (Version 1)
Quarter: 2013Q2

REPORT INFORMATION
  Report Type: Spontaneous
  Country: US (occurrence: US)
  Receive Date: 20130621
  Receipt Date: 20130621
  Transmission Date: 20140414
  Serious: No
  Sender: FDA-Public Use
  Company Number: US-BAYER-2013-075680

PATIENT
  Age: 83 Year
  Sex: Male
  Weight: 81.63 kg

DRUGS (9)
  1. ALEVE CAPLET [Suspect]
     Indication: HEADACHE
     Dosage: 1 DF, PRN
     Route: 048
  2. BAYER GENUINE ASPIRIN ORIGINAL STRENGTH [Suspect]
     Indication: ISCHAEMIC HEART DISEASE PROPHYLAXIS
     Dosage: 1 DF, QD
     Route: 048
     Dates: start: 1993
  3. LISINOPRIL [Concomitant]
  4. METFORMIN [Concomitant]
  5. FLOVENT [Concomitant]
  6. CENTRUM SILVER [Concomitant]
  7. VITAMIN D [Concomitant]
  8. TUMS [CALCIUM CARBONATE] [Concomitant]
  9. LIPITOR [Concomitant]

REACTIONS (3)
  - Pre-existing condition improved [None]
  - Drug ineffective [None]
  - Incorrect drug administration duration [None]
